FAERS Safety Report 6587828-7 (Version None)
Quarter: 2010Q1

REPORT INFORMATION
  Report Type: 
  Country: None (occurrence: None)
  Receive Date: 20100218
  Receipt Date: 20100215
  Transmission Date: 20100710
  Serious: Yes (Death)
  Sender: FDA-Public Use
  Company Number: PHHY2009CO51401

PATIENT
  Sex: Female

DRUGS (5)
  1. SANDOSTATIN [Suspect]
     Indication: ACROMEGALY
     Dosage: 1 DF, QMO
     Dates: start: 20081226, end: 20090928
  2. SANDOSTATIN [Suspect]
     Indication: GIGANTISM
  3. DESMOPRESSIN ACETATE [Concomitant]
     Dosage: 5 BOTTLES/MONTH
  4. PREDNISOLONE [Concomitant]
  5. ACETAMINOPHEN [Concomitant]

REACTIONS (1)
  - DEATH [None]
